FAERS Safety Report 4982219-4 (Version None)
Quarter: 2006Q2

REPORT INFORMATION
  Report Type: 
  Country: None (occurrence: None)
  Receive Date: 20060419
  Receipt Date: 20060406
  Transmission Date: 20061013
  Serious: Yes (Hospitalization)
  Sender: FDA-Public Use
  Company Number: 223853

PATIENT
  Age: 30 Year
  Sex: Male
  Weight: 65.8 kg

DRUGS (2)
  1. RAPTIVA [Suspect]
     Indication: PSORIASIS
     Dosage: 0.7 ; .05 ML, 1/WEEK , SUBCUTANEOUS
     Route: 058
     Dates: start: 20060201
  2. RAPTIVA [Suspect]
     Indication: PSORIASIS
     Dosage: 0.7 ; .05 ML, 1/WEEK , SUBCUTANEOUS
     Route: 058
     Dates: start: 20060201

REACTIONS (1)
  - MENINGITIS BACTERIAL [None]
